FAERS Safety Report 16142378 (Version 3)
Quarter: 2019Q3

REPORT INFORMATION
  Report Type: Spontaneous
  Country: US (occurrence: US)
  Receive Date: 20190401
  Receipt Date: 20190729
  Transmission Date: 20191004
  Serious: No
  Sender: FDA-Public Use
  Company Number: US-SA-2019SA089480

PATIENT
  Age: 20 Year
  Sex: Male

DRUGS (1)
  1. TUBERSOL [Suspect]
     Active Substance: TUBERCULIN PURIFIED PROTEIN DERIVATIVE
     Indication: OCCUPATIONAL EXPOSURE TO PRODUCT
     Dosage: 0.1 ML
     Route: 023
     Dates: start: 20190329, end: 20190329

REACTIONS (2)
  - Ocular hyperaemia [Recovered/Resolved]
  - Occupational exposure to product [Unknown]

NARRATIVE: CASE EVENT DATE: 20190329
